FAERS Safety Report 8334515-0 (Version None)
Quarter: 2012Q2

REPORT INFORMATION
  Report Type: 
  Country: None (occurrence: None)
  Receive Date: 20120503
  Receipt Date: 20120429
  Transmission Date: 20120825
  Serious: Yes (Hospitalization)
  Sender: FDA-Public Use
  Company Number: PHEH2012US009087

PATIENT
  Age: 33 Year
  Sex: Male
  Weight: 86.168 kg

DRUGS (2)
  1. TYSABRI [Concomitant]
     Dosage: UNK UKN, UNK
  2. GILENYA [Suspect]
     Dosage: 1 DF, QD
     Route: 048

REACTIONS (3)
  - FACIAL ASYMMETRY [None]
  - DYSARTHRIA [None]
  - HYPOKINESIA [None]
